FAERS Safety Report 5291389-2 (Version None)
Quarter: 2007Q2

REPORT INFORMATION
  Report Type: 
  Country: None (occurrence: None)
  Receive Date: 20070402
  Receipt Date: 20070321
  Transmission Date: 20071010
  Serious: Yes (Other)
  Sender: FDA-Public Use
  Company Number: 2007RR-06493

PATIENT
  Age: 71 Year
  Sex: Male
  Weight: 84 kg

DRUGS (3)
  1. SIMVASTATIN [Suspect]
     Indication: CORONARY ARTERY DISEASE
     Dosage: 10 MG, ORAL
     Route: 048
     Dates: start: 20060228, end: 20061006
  2. SIMVASTATIN [Suspect]
     Indication: CORONARY ARTERY DISEASE
     Dosage: 10 MG, ORAL
     Route: 048
     Dates: end: 20070212
  3. ATENOLOL [Concomitant]

REACTIONS (4)
  - MALAISE [None]
  - MUCOSAL INFLAMMATION [None]
  - MYOSITIS [None]
  - ORAL PAIN [None]
